FAERS Safety Report 6986134-6 (Version None)
Quarter: 2010Q3

REPORT INFORMATION
  Report Type: 
  Country: None (occurrence: None)
  Receive Date: 20100910
  Receipt Date: 20100830
  Transmission Date: 20110219
  Serious: Yes (Other)
  Sender: FDA-Public Use
  Company Number: DSJ-2010-15101

PATIENT
  Age: 65 Year
  Sex: Female

DRUGS (4)
  1. BENICAR HCT [Suspect]
     Indication: HYPERTENSION
     Dosage: 20/12.5 (1 IN 1 D), PER ORAL
     Route: 048
     Dates: start: 20100701, end: 20100824
  2. LEVOTHYROCINE SODIUM (LEVOTHYRONE SODIUM) (LEVOTHYROXINE SODIUM) [Concomitant]
  3. FLUNARIZINE (FLUNARIZINE) (FLUNARIZINE) [Concomitant]
  4. BUDESONIDE [Concomitant]

REACTIONS (4)
  - BLOOD PRESSURE INCREASED [None]
  - FALL [None]
  - MUSCULAR WEAKNESS [None]
  - UPPER LIMB FRACTURE [None]
